FAERS Safety Report 9329067 (Version 1)
Quarter: 2013Q2

REPORT INFORMATION
  Report Type: Spontaneous
  Country: US (occurrence: US)
  Receive Date: 20130604
  Receipt Date: 20130604
  Transmission Date: 20140414
  Serious: Yes (Hospitalization)
  Sender: FDA-Public Use
  Company Number: US-SANOFI-AVENTIS-2012SA076680

PATIENT
  Age: 33 Year
  Sex: Female

DRUGS (2)
  1. LANTUS SOLOSTAR [Suspect]
     Indication: DIABETES MELLITUS INADEQUATE CONTROL
     Dosage: 28-29 UNITS
     Route: 058
     Dates: start: 2010
  2. SOLOSTAR [Suspect]
     Indication: DIABETES MELLITUS INADEQUATE CONTROL
     Dates: start: 2010

REACTIONS (4)
  - Dawn phenomenon [Not Recovered/Not Resolved]
  - Blood glucose increased [Not Recovered/Not Resolved]
  - Therapeutic response decreased [Not Recovered/Not Resolved]
  - Blood glucose decreased [Not Recovered/Not Resolved]
